FAERS Safety Report 6824928-8 (Version None)
Quarter: 2010Q3

REPORT INFORMATION
  Report Type: 
  Country: None (occurrence: None)
  Receive Date: 20100708
  Receipt Date: 20061126
  Transmission Date: 20110219
  Serious: No
  Sender: FDA-Public Use
  Company Number: US-PFIZER INC-2006147041

PATIENT
  Sex: Female
  Weight: 58.06 kg

DRUGS (5)
  1. CHANTIX [Suspect]
     Indication: SMOKING CESSATION THERAPY
     Dosage: DAILY FOR THREE DAYS
     Route: 048
     Dates: start: 20061101
  2. CHANTIX [Suspect]
     Dosage: TWICE DAILY FOR FOUR DAYS
     Route: 048
  3. CHANTIX [Suspect]
     Dosage: TWICE DAILY
     Route: 048
  4. EFFEXOR [Concomitant]
     Indication: DEPRESSION
     Route: 048
  5. VICODIN [Concomitant]
     Indication: PAIN
     Route: 048

REACTIONS (3)
  - INCORRECT DOSE ADMINISTERED [None]
  - NAUSEA [None]
  - NO ADVERSE EVENT [None]
